FAERS Safety Report 4939925-7 (Version None)
Quarter: 2006Q1

REPORT INFORMATION
  Report Type: 
  Country: None (occurrence: None)
  Receive Date: 20060310
  Receipt Date: 20060220
  Transmission Date: 20060701
  Serious: No
  Sender: FDA-Public Use
  Company Number: GB-GLAXOSMITHKLINE-B0412800A

PATIENT
  Sex: Female

DRUGS (1)
  1. AVANDAMET [Suspect]
     Dosage: 4MG UNKNOWN
     Route: 048

REACTIONS (3)
  - FOREIGN BODY SENSATION IN EYES [None]
  - JOINT SWELLING [None]
  - LACRIMATION INCREASED [None]
